FAERS Safety Report 4386090-3 (Version None)
Quarter: 2004Q2

REPORT INFORMATION
  Report Type: 
  Country: None (occurrence: None)
  Receive Date: 20040624
  Receipt Date: 20030506
  Transmission Date: 20050107
  Serious: Yes (Hospitalization)
  Sender: FDA-Public Use
  Company Number: LBID00203001215

PATIENT
  Age: 14 Year
  Sex: Male

DRUGS (1)
  1. LITHOBID [Suspect]
     Indication: ILL-DEFINED DISORDER
     Dosage: DAILY PO
     Route: 048

REACTIONS (1)
  - DRUG LEVEL DECREASED [None]
